FAERS Safety Report 4985094-7 (Version None)
Quarter: 2006Q1

REPORT INFORMATION
  Report Type: 
  Country: None (occurrence: None)
  Receive Date: 20060303
  Receipt Date: 19980721
  Transmission Date: 20060701
  Serious: Yes (Life-Threatening, Hospitalization)
  Sender: FDA-Public Use
  Company Number: PHEH1998US17918

PATIENT
  Age: 34 Year
  Sex: Male

DRUGS (7)
  1. NEORAL [Suspect]
     Indication: RENAL TRANSPLANT
     Dosage: 175 MG, BID, ORAL
     Route: 048
     Dates: start: 19940703
  2. PREDNISONE TAB [Concomitant]
  3. LASIX [Concomitant]
  4. CLONIDINE [Concomitant]
  5. ADALAT [Concomitant]
  6. LABETALOL HCL [Concomitant]
  7. PEPCID [Concomitant]

REACTIONS (2)
  - BLOOD CREATININE INCREASED [None]
  - TRANSPLANT REJECTION [None]
